FAERS Safety Report 8010616-1 (Version None)
Quarter: 2011Q4

REPORT INFORMATION
  Report Type: 
  Country: None (occurrence: None)
  Receive Date: 20111228
  Receipt Date: 20111220
  Transmission Date: 20120403
  Serious: Yes (Hospitalization)
  Sender: FDA-Public Use
  Company Number: IL-JNJFOC-20111210047

PATIENT
  Sex: Female
  Weight: 67 kg

DRUGS (10)
  1. DOXORUBICIN HCL [Suspect]
     Route: 042
     Dates: start: 20110118, end: 20110118
  2. FOLIC ACID [Concomitant]
     Indication: NUTRITIONAL SUPPORT
     Route: 065
     Dates: start: 20041201
  3. OMEPRAZOLE [Concomitant]
     Indication: GASTROOESOPHAGEAL REFLUX PROPHYLAXIS
     Route: 065
     Dates: start: 20041201
  4. DOXORUBICIN HCL [Suspect]
     Indication: OVARIAN CANCER
     Route: 042
  5. ERGOCALCIFEROL [Concomitant]
     Indication: NUTRITIONAL SUPPORT
     Route: 065
     Dates: start: 20091001
  6. AMOXICILLIN [Concomitant]
     Indication: DYSURIA
     Route: 065
     Dates: start: 20101130, end: 20101206
  7. SIMVASTATIN [Concomitant]
     Indication: HYPERCHOLESTEROLAEMIA
     Route: 065
     Dates: start: 19990101
  8. DOXORUBICIN HCL [Suspect]
     Route: 042
     Dates: start: 20101114, end: 20101114
  9. ASPIRIN [Concomitant]
     Indication: CARDIOVASCULAR EVENT PROPHYLAXIS
     Route: 065
     Dates: start: 20091201
  10. ASPIRIN [Concomitant]
     Route: 065
     Dates: start: 20091201

REACTIONS (2)
  - ASTHENIA [None]
  - VERTIGO [None]
